FAERS Safety Report 15546962 (Version 10)
Quarter: 2019Q3

REPORT INFORMATION
  Report Type: Report from Study
  Country: DE (occurrence: DE)
  Receive Date: 20181024
  Receipt Date: 20190906
  Transmission Date: 20191004
  Serious: Yes (Death, Hospitalization, Other)
  Sender: FDA-Public Use
  Company Number: PHHY2018DE133968

PATIENT
  Age: 71 Year
  Sex: Male
  Weight: 108 kg

DRUGS (12)
  1. TORASEMIDE [Concomitant]
     Active Substance: TORSEMIDE
     Indication: OEDEMA PERIPHERAL
     Dosage: 15 MG, QD (1-1/2-0)
     Route: 065
     Dates: start: 2017
  2. INSUMAN RAPID [Concomitant]
     Active Substance: INSULIN HUMAN
     Indication: TYPE 2 DIABETES MELLITUS
     Dosage: ACC. TO SCHEME
     Route: 065
     Dates: start: 1985
  3. ALLOPURINOL. [Concomitant]
     Active Substance: ALLOPURINOL
     Indication: GOUT
     Dosage: 100 MG, QD (3-0-0)
     Route: 065
  4. METHOTREXATE. [Concomitant]
     Active Substance: METHOTREXATE
     Indication: PRODUCT USED FOR UNKNOWN INDICATION
     Route: 065
  5. EXJADE [Suspect]
     Active Substance: DEFERASIROX
     Indication: MYELODYSPLASTIC SYNDROME
     Dosage: 360 MG, (12.5 MG/KG BODYWEIGHT/DAY=4 TABLETS A 360MG)
     Route: 065
     Dates: start: 20180929, end: 20181006
  6. PANTOPRAZOLE [Concomitant]
     Active Substance: PANTOPRAZOLE
     Indication: GASTROOESOPHAGEAL REFLUX DISEASE
     Dosage: 20 MG, QD
     Route: 065
     Dates: start: 2017
  7. FOLIC ACID. [Concomitant]
     Active Substance: FOLIC ACID
     Indication: HYPERTENSIVE HEART DISEASE
     Dosage: 0.4 MG, QD (1-0-0)
     Route: 065
     Dates: start: 2017
  8. EXJADE [Suspect]
     Active Substance: DEFERASIROX
     Dosage: UNK
     Route: 065
     Dates: start: 20181007, end: 20181007
  9. VALSARTAN. [Concomitant]
     Active Substance: VALSARTAN
     Indication: HYPERTENSION
     Dosage: 80 MG, QD
     Route: 065
     Dates: start: 1990
  10. METFORMIN [Concomitant]
     Active Substance: METFORMIN HYDROCHLORIDE
     Indication: TYPE 2 DIABETES MELLITUS
     Dosage: 1000 MG, BID (1-0-1)
     Route: 065
     Dates: start: 1985
  11. SPIRO COMP [Concomitant]
     Active Substance: FUROSEMIDE\SPIRONOLACTONE
     Indication: OEDEMA PERIPHERAL
     Dosage: 1 DF, QD (1-0-0)
     Route: 065
  12. LANTUS [Concomitant]
     Active Substance: INSULIN GLARGINE
     Indication: TYPE 2 DIABETES MELLITUS
     Dosage: ACC. TO INSULIN SCHEME
     Route: 065
     Dates: start: 1985

REACTIONS (16)
  - Diarrhoea [Fatal]
  - Hyperbilirubinaemia [Fatal]
  - Muscle strain [Unknown]
  - Drug intolerance [Unknown]
  - Renal failure [Fatal]
  - Blood creatinine increased [Fatal]
  - Acute hepatic failure [Fatal]
  - Rash [Fatal]
  - Diabetes mellitus [Fatal]
  - Mobility decreased [Unknown]
  - Serum ferritin increased [Unknown]
  - Abdominal discomfort [Fatal]
  - General physical health deterioration [Fatal]
  - Gastrointestinal pain [Fatal]
  - Liver disorder [Fatal]
  - Chromaturia [Fatal]

NARRATIVE: CASE EVENT DATE: 20181005
